FAERS Safety Report 14934789 (Version 2)
Quarter: 2018Q3

REPORT INFORMATION
  Report Type: Spontaneous
  Country: US (occurrence: US)
  Receive Date: 20180524
  Receipt Date: 20180718
  Transmission Date: 20181010
  Serious: No
  Sender: FDA-Public Use
  Company Number: US-TEIKOKU PHARMA USA-TPU2018-00339

PATIENT
  Sex: Male
  Weight: 54.48 kg

DRUGS (5)
  1. ACETAMINOPHEN. [Concomitant]
     Active Substance: ACETAMINOPHEN
     Indication: PAIN
     Dosage: 6 TABLETS MAXIMUM DAILY?500MG TABLETS
  2. LIDOCAINE PATCH [Suspect]
     Active Substance: LIDOCAINE
     Indication: SPINAL COLUMN STENOSIS
     Dosage: MAXIMUM THREE PATCHES A DAY
     Dates: start: 2011
  3. LYRICA [Concomitant]
     Active Substance: PREGABALIN
     Indication: PAIN
     Dosage: 25MG IN THE MORNING?50MG AT NIGHT
  4. EPIDURALS AND NERVE BLOCKS [Concomitant]
     Route: 008
  5. LIDOCAINE PATCH [Suspect]
     Active Substance: LIDOCAINE
     Indication: RENAL PAIN

REACTIONS (1)
  - Chronic kidney disease [Not Recovered/Not Resolved]
